FAERS Safety Report 11680419 (Version 2)
Quarter: 2015Q4

REPORT INFORMATION
  Report Type: Spontaneous
  Country: US (occurrence: US)
  Receive Date: 20151027
  Receipt Date: 20151104
  Transmission Date: 20160304
  Serious: No
  Sender: FDA-Public Use
  Company Number: US-ELI_LILLY_AND_COMPANY-US201009000053

PATIENT
  Sex: Male

DRUGS (4)
  1. FORTEO [Suspect]
     Active Substance: TERIPARATIDE
     Dosage: 20 UG, QOD
     Route: 065
     Dates: end: 201102
  2. FORTEO [Suspect]
     Active Substance: TERIPARATIDE
     Dosage: 20 UG, DAILY (1/D)
     Route: 065
  3. FORTEO [Suspect]
     Active Substance: TERIPARATIDE
     Dosage: 20 UG, QD
     Route: 065
  4. FORTEO [Suspect]
     Active Substance: TERIPARATIDE
     Indication: OSTEOPOROSIS
     Dosage: 20 UG, DAILY (1/D)
     Route: 065
     Dates: start: 201008

REACTIONS (10)
  - Bone pain [Not Recovered/Not Resolved]
  - Muscular weakness [Unknown]
  - Pain in jaw [Unknown]
  - Myalgia [Unknown]
  - Headache [Unknown]
  - Pain in extremity [Unknown]
  - Adverse drug reaction [Unknown]
  - Asthenia [Unknown]
  - Movement disorder [Unknown]
  - Balance disorder [Unknown]
